FAERS Safety Report 6121596-8 (Version None)
Quarter: 2009Q1

REPORT INFORMATION
  Report Type: 
  Country: None (occurrence: None)
  Receive Date: 20090317
  Receipt Date: 20090310
  Transmission Date: 20090719
  Serious: Yes (Hospitalization)
  Sender: FDA-Public Use
  Company Number: US-KINGPHARMUSA00001-K200900262

PATIENT
  Age: 64 Year
  Sex: Female

DRUGS (5)
  1. ALTACE [Suspect]
     Dosage: 5 MG, QD
     Route: 048
     Dates: start: 20080709, end: 20080711
  2. ALTACE [Suspect]
     Dosage: UNK
     Dates: start: 20080701
  3. HYDROCHLOROTHIAZIDE [Suspect]
     Dosage: 25 MG, QD
     Route: 048
     Dates: start: 20080709, end: 20080711
  4. TOREM                              /01036502/ [Suspect]
     Dosage: 5 MG, QD
     Route: 048
     Dates: start: 20080709, end: 20080711
  5. MARCUMAR [Concomitant]
     Dosage: 3 MG, UNK
     Route: 048

REACTIONS (10)
  - ATRIAL FIBRILLATION [None]
  - CHEST PAIN [None]
  - DEHYDRATION [None]
  - DRUG INTERACTION [None]
  - DYSPNOEA [None]
  - HYPOKALAEMIA [None]
  - HYPOVOLAEMIA [None]
  - POLYCYTHAEMIA [None]
  - RENAL FAILURE [None]
  - TACHYCARDIA [None]
